FAERS Safety Report 23891085 (Version 1)
Quarter: 2024Q2

REPORT INFORMATION
  Report Type: Spontaneous
  Country: CH (occurrence: CH)
  Receive Date: 20240523
  Receipt Date: 20240523
  Transmission Date: 20240715
  Serious: Yes (Hospitalization, Other)
  Sender: FDA-Public Use
  Company Number: None

PATIENT
  Age: 64 Year
  Sex: Female

DRUGS (1)
  1. KEYTRUDA [Suspect]
     Active Substance: PEMBROLIZUMAB
     Indication: Triple negative breast cancer
     Dosage: 200 MILLIGRAM
     Route: 042
     Dates: start: 20231220, end: 20240221

REACTIONS (2)
  - Secondary adrenocortical insufficiency [Not Recovered/Not Resolved]
  - Central hypothyroidism [Not Recovered/Not Resolved]

NARRATIVE: CASE EVENT DATE: 20240418
